FAERS Safety Report 11744035 (Version 1)
Quarter: 2015Q4

REPORT INFORMATION
  Report Type: Report from Study
  Country: FR (occurrence: FR)
  Receive Date: 20151116
  Receipt Date: 20151116
  Transmission Date: 20160304
  Serious: Yes (Hospitalization)
  Sender: FDA-Public Use
  Company Number: FR-B.I. PHARMACEUTICALS,INC./RIDGEFIELD-2015-BI-62678II

PATIENT
  Age: 45 Year
  Sex: Female
  Weight: 86 kg

DRUGS (5)
  1. DOCETAXEL. [Suspect]
     Active Substance: DOCETAXEL
     Indication: BREAST CANCER
     Dosage: 138.54 MG
     Route: 065
     Dates: start: 20150707, end: 20150707
  2. TAZOCILINE [Concomitant]
     Indication: PYREXIA
     Route: 065
     Dates: start: 20150715
  3. BIBF 1120 [Suspect]
     Active Substance: NINTEDANIB
     Indication: BREAST CANCER
     Dosage: 200 MG
     Route: 065
     Dates: start: 20150708, end: 20150715
  4. BIBF 1120 [Suspect]
     Active Substance: NINTEDANIB
     Dosage: 200 MG
     Route: 065
     Dates: start: 20150720
  5. CIFLOX [Concomitant]
     Active Substance: CIPROFLOXACIN
     Indication: PYREXIA
     Route: 065
     Dates: start: 20150715

REACTIONS (1)
  - Febrile neutropenia [Recovered/Resolved]

NARRATIVE: CASE EVENT DATE: 20150715
